FAERS Safety Report 6712558-8 (Version None)
Quarter: 2010Q2

REPORT INFORMATION
  Report Type: 
  Country: None (occurrence: None)
  Receive Date: 20100506
  Receipt Date: 20100423
  Transmission Date: 20101027
  Serious: Yes (Hospitalization, Disabling, Other)
  Sender: FDA-Public Use
  Company Number: DK-BAYER-200943136GPV

PATIENT
  Age: 15 Year
  Sex: Female
  Weight: 63 kg

DRUGS (1)
  1. YASMIN [Suspect]
     Indication: CONTRACEPTION
     Dosage: EACH CYCLE: 21 DAYS WITH 7 DAYS BREAK
     Route: 048
     Dates: start: 20061115, end: 20090930

REACTIONS (10)
  - AFFECT LABILITY [None]
  - ANTISOCIAL BEHAVIOUR [None]
  - DEPRESSED MOOD [None]
  - DYSPHORIA [None]
  - EATING DISORDER [None]
  - HALLUCINATION, AUDITORY [None]
  - HALLUCINATION, VISUAL [None]
  - INTENTIONAL SELF-INJURY [None]
  - OBSESSIVE THOUGHTS [None]
  - SUICIDAL IDEATION [None]
